FAERS Safety Report 9962139 (Version 1)
Quarter: 2014Q1

REPORT INFORMATION
  Report Type: Spontaneous
  Country: US (occurrence: US)
  Receive Date: 20140305
  Receipt Date: 20140305
  Transmission Date: 20141002
  Serious: No
  Sender: FDA-Public Use
  Company Number: US-ABBVIE-13P-163-1112870-00

PATIENT
  Age: 48 Year
  Sex: Female
  Weight: 118.95 kg

DRUGS (2)
  1. HUMIRA [Suspect]
     Indication: SARCOIDOSIS
     Route: 058
     Dates: start: 2009
  2. DICLOFENAC [Concomitant]
     Indication: FIBROMYALGIA

REACTIONS (4)
  - Injury associated with device [Recovered/Resolved]
  - Pain in extremity [Recovering/Resolving]
  - Incorrect dose administered [Recovered/Resolved]
  - Wrong technique in drug usage process [Recovered/Resolved]
